FAERS Safety Report 4346566-1 (Version None)
Quarter: 2004Q2

REPORT INFORMATION
  Report Type: 
  Country: None (occurrence: None)
  Receive Date: 20040426
  Receipt Date: 20040213
  Transmission Date: 20050107
  Serious: Yes (Other)
  Sender: FDA-Public Use
  Company Number: US-BRISTOL-MYERS SQUIBB COMPANY-12504718

PATIENT
  Age: 49 Year
  Sex: Female

DRUGS (7)
  1. CARBOPLATIN [Suspect]
     Route: 042
     Dates: start: 20040212, end: 20040212
  2. ZOFRAN [Concomitant]
     Indication: PREMEDICATION
     Route: 042
     Dates: start: 20040212
  3. ZOFRAN [Concomitant]
     Route: 048
  4. DEXAMETHASONE [Concomitant]
     Indication: PREMEDICATION
     Route: 042
     Dates: start: 20040212
  5. AMOXICILLIN [Concomitant]
  6. GLYBURIDE [Concomitant]
  7. OXYCODONE [Concomitant]

REACTIONS (6)
  - BLOOD PRESSURE DECREASED [None]
  - COUGH [None]
  - DYSPNOEA [None]
  - PRURITUS [None]
  - RASH [None]
  - SNEEZING [None]
